FAERS Safety Report 4949436-0 (Version None)
Quarter: 2006Q1

REPORT INFORMATION
  Report Type: 
  Country: None (occurrence: None)
  Receive Date: 20060315
  Receipt Date: 20060227
  Transmission Date: 20060701
  Serious: Yes (Hospitalization, Other)
  Sender: FDA-Public Use
  Company Number: US200601005031

PATIENT
  Age: 49 Year
  Sex: Female
  Weight: 73.5 kg

DRUGS (14)
  1. GEMZAR [Suspect]
     Indication: BREAST CANCER METASTATIC
     Dosage: SEE IMAGE
     Route: 030
     Dates: start: 20060105
  2. GEMZAR [Suspect]
     Indication: BREAST CANCER METASTATIC
     Dosage: SEE IMAGE
     Route: 030
     Dates: start: 20060112
  3. GEMZAR [Suspect]
     Indication: BREAST CANCER METASTATIC
     Dosage: SEE IMAGE
     Route: 030
     Dates: start: 20060126
  4. GEMZAR [Suspect]
     Indication: BREAST CANCER METASTATIC
     Dosage: SEE IMAGE
     Route: 030
     Dates: start: 20060202
  5. GEMZAR [Suspect]
     Indication: BREAST CANCER METASTATIC
     Dosage: SEE IMAGE
     Route: 030
     Dates: start: 20060209
  6. ZOMETA [Concomitant]
  7. LITHIUM (LITHIUM) [Concomitant]
  8. ARICEPT /JPN/ (DONEPEZIL HYDROCHLORIDE) [Concomitant]
  9. ARANESP [Concomitant]
  10. ASACOL [Concomitant]
  11. PROTONIX [Concomitant]
  12. OXYCONTIN [Concomitant]
  13. SEROQUEL [Concomitant]
  14. SYNTHROID [Concomitant]

REACTIONS (7)
  - BONE MARROW FAILURE [None]
  - CHILLS [None]
  - FATIGUE [None]
  - POST PROCEDURAL NAUSEA [None]
  - RETCHING [None]
  - THERAPEUTIC AGENT TOXICITY [None]
  - UPPER RESPIRATORY TRACT INFECTION [None]
